FAERS Safety Report 11295323 (Version 1)
Quarter: 2015Q3

REPORT INFORMATION
  Report Type: Spontaneous
  Country: US (occurrence: None)
  Receive Date: 20150722
  Receipt Date: 20150722
  Transmission Date: 20151125
  Serious: Yes (Other)
  Sender: FDA-Public Use
  Company Number: None

PATIENT
  Age: 27 Year
  Sex: Male
  Weight: 63.6 kg

DRUGS (5)
  1. NPH INSULIN [Suspect]
     Active Substance: INSULIN BEEF
     Indication: TYPE 1 DIABETES MELLITUS
     Dosage: 15 UNITS
     Route: 058
     Dates: start: 20150521, end: 20150525
  2. VITAMIN D [Concomitant]
     Active Substance: CHOLECALCIFEROL
  3. HALOPERIDOL. [Concomitant]
     Active Substance: HALOPERIDOL
  4. INSULIN REGULAR, SLIDING SCALE [Concomitant]
  5. DIPHENHYDRAMINE. [Concomitant]
     Active Substance: DIPHENHYDRAMINE

REACTIONS (5)
  - Hyperglycaemia [None]
  - Unresponsive to stimuli [None]
  - Blood glucose decreased [None]
  - Hypophagia [None]
  - Food craving [None]

NARRATIVE: CASE EVENT DATE: 20150522
